FAERS Safety Report 6842244-5 (Version None)
Quarter: 2010Q3

REPORT INFORMATION
  Report Type: 
  Country: None (occurrence: None)
  Receive Date: 20100714
  Receipt Date: 20070724
  Transmission Date: 20110219
  Serious: No
  Sender: FDA-Public Use
  Company Number: US-PFIZER INC-2007062574

PATIENT
  Sex: Female
  Weight: 75 kg

DRUGS (7)
  1. CHANTIX [Suspect]
     Indication: SMOKING CESSATION THERAPY
     Dates: start: 20070701
  2. BUPROPION HYDROCHLORIDE [Concomitant]
  3. CEPHALEXIN [Concomitant]
  4. LORAZEPAM [Concomitant]
  5. ADVAIR DISKUS 100/50 [Concomitant]
  6. ACETYLSALICYLIC ACID [Concomitant]
  7. TYLENOL [Concomitant]

REACTIONS (1)
  - NAUSEA [None]
